FAERS Safety Report 8282211-0 (Version None)
Quarter: 2012Q1

REPORT INFORMATION
  Report Type: 
  Country: None (occurrence: None)
  Receive Date: 20120323
  Receipt Date: 20120313
  Transmission Date: 20120608
  Serious: Yes (Hospitalization)
  Sender: FDA-Public Use
  Company Number: 2012031621

PATIENT
  Age: 8 Year
  Sex: Female
  Weight: 26.7622 kg

DRUGS (19)
  1. HIZENTRA [Suspect]
     Indication: HYPOGAMMAGLOBULINAEMIA
     Dosage: (4 G 1X/WEEK, 2-3 SITES OVER 1 HOUR SUBCUTANEOUS)
     Route: 058
     Dates: start: 20110503
  2. HIZENTRA [Suspect]
     Indication: HYPOGAMMAGLOBULINAEMIA
     Dosage: (4 G 1X/WEEK, 2-3 SITES OVER 1 HOUR SUBCUTANEOUS)
     Route: 058
     Dates: start: 20120310, end: 20120310
  3. PREDNISONE TAB [Concomitant]
  4. CLEOCIN (CLINDAMYCIN HYDROCHLORIDE) [Concomitant]
  5. AUGMENTIN '125' [Concomitant]
  6. SENNA POWDER (SENNOSIDE A+B) [Concomitant]
  7. ZONEGRAN [Concomitant]
  8. KEPPA (LEVETIRACETAM) [Concomitant]
  9. DIASTAT [Concomitant]
  10. PULMICORT [Concomitant]
  11. PANTOPRAZOLE [Concomitant]
  12. AZITHROMYCIN [Concomitant]
  13. CLARITIN [Concomitant]
  14. MOTRIN [Concomitant]
  15. FRISIUM (CLOBAZAM) [Concomitant]
  16. PHENOBARBITAL TAB [Concomitant]
  17. OXYGEN (OXYGEN) [Concomitant]
  18. ACETAMINOPHEN [Concomitant]
  19. ATROVENT [Concomitant]

REACTIONS (2)
  - VIRAL INFECTION [None]
  - BACTERIAL INFECTION [None]
